FAERS Safety Report 18260246 (Version 1)
Quarter: 2020Q3

REPORT INFORMATION
  Report Type: Other
  Country: FR (occurrence: FR)
  Receive Date: 20200913
  Receipt Date: 20200913
  Transmission Date: 20201103
  Serious: Yes (Other)
  Sender: FDA-Public Use
  Company Number: FR-TOLMAR, INC.-20FR022665

PATIENT
  Age: 68 Year
  Sex: Male
  Weight: 76 kg

DRUGS (1)
  1. ELIGARD [Suspect]
     Active Substance: LEUPROLIDE ACETATE
     Indication: PROSTATE CANCER
     Dosage: 1 DOSAGE FORM
     Route: 058
     Dates: start: 20200407, end: 20200407

REACTIONS (2)
  - Prostate cancer [Recovered/Resolved with Sequelae]
  - Drug ineffective [Unknown]

NARRATIVE: CASE EVENT DATE: 20200601
